FAERS Safety Report 18701374 (Version 15)
Quarter: 2021Q4

REPORT INFORMATION
  Report Type: Report from Study
  Country: CN (occurrence: CN)
  Receive Date: 20210105
  Receipt Date: 20211025
  Transmission Date: 20220303
  Serious: Yes (Life-Threatening, Hospitalization)
  Sender: FDA-Public Use
  Company Number: CN-ROCHE-2742887

PATIENT
  Age: 56 Year
  Sex: Male
  Weight: 65 kg

DRUGS (137)
  1. ATEZOLIZUMAB [Suspect]
     Active Substance: ATEZOLIZUMAB
     Indication: Small cell lung cancer extensive stage
     Dosage: DATE OF MOST RECENT DOSE OF ATEZOLIZUMAB PRIOR TO SAE/AESI/SPECIAL SITUATION ON 20/FEB/2021.
     Route: 041
     Dates: start: 20201225, end: 20210220
  2. CISPLATIN [Suspect]
     Active Substance: CISPLATIN
     Indication: Small cell lung cancer extensive stage
     Dosage: DATE OF MOST RECENT DOSE OF CISPLATIN (120 MG) PRIOR TO SAE/AESI ONSET 27/DEC/2020.?DATE OF MOST REC
     Route: 042
     Dates: start: 20201225, end: 20210222
  3. ETOPOSIDE [Suspect]
     Active Substance: ETOPOSIDE
     Indication: Small cell lung cancer extensive stage
     Dosage: DATE OF MOST RECENT DOSE OF ETOPOSIDE PRIOR TO SAE/AESI ONSET ON 27/DEC/2020 (120 MG)?DATE OF MOST R
     Route: 042
     Dates: start: 20201225, end: 20210222
  4. OMEPRAZOLE [Concomitant]
     Active Substance: OMEPRAZOLE
     Dosage: ONCE PER DAY
     Dates: start: 20210611, end: 20210611
  5. CODEINE PHOSPHATE [Concomitant]
     Active Substance: CODEINE PHOSPHATE
     Route: 048
     Dates: start: 20201224, end: 20201228
  6. CODEINE PHOSPHATE [Concomitant]
     Active Substance: CODEINE PHOSPHATE
     Route: 048
     Dates: start: 20201230, end: 20201230
  7. CODEINE PHOSPHATE [Concomitant]
     Active Substance: CODEINE PHOSPHATE
     Route: 048
     Dates: start: 20201228, end: 20210104
  8. CODEINE PHOSPHATE [Concomitant]
     Active Substance: CODEINE PHOSPHATE
     Route: 048
     Dates: start: 20210104, end: 20210225
  9. CODEINE PHOSPHATE [Concomitant]
     Active Substance: CODEINE PHOSPHATE
     Dosage: TOTAL DAILY DOSE:
     Route: 048
     Dates: start: 20201218
  10. CODEINE PHOSPHATE [Concomitant]
     Active Substance: CODEINE PHOSPHATE
     Dates: start: 20210320, end: 20210322
  11. CODEINE PHOSPHATE [Concomitant]
     Active Substance: CODEINE PHOSPHATE
     Dates: start: 20210319, end: 20210323
  12. BIFENDATE [Concomitant]
     Active Substance: BIFENDATE
     Dates: start: 20201229
  13. PHOSPHOLIPID [Concomitant]
     Active Substance: PHOSPHOLIPID
     Dates: start: 20201229, end: 20210103
  14. TRAMADOL HYDROCHLORIDE [Concomitant]
     Active Substance: TRAMADOL HYDROCHLORIDE
     Dates: start: 202011, end: 202012
  15. AMBROXOL HYDROCHLORIDE [Concomitant]
     Active Substance: AMBROXOL HYDROCHLORIDE
     Dates: start: 20201215, end: 20210104
  16. AMBROXOL HYDROCHLORIDE [Concomitant]
     Active Substance: AMBROXOL HYDROCHLORIDE
     Dates: start: 20210320, end: 20210322
  17. AMBROXOL HYDROCHLORIDE [Concomitant]
     Active Substance: AMBROXOL HYDROCHLORIDE
     Dates: start: 20210323, end: 20210323
  18. AMBROXOL HYDROCHLORIDE [Concomitant]
     Active Substance: AMBROXOL HYDROCHLORIDE
     Dates: start: 20210521, end: 20210527
  19. ALLOPURINOL [Concomitant]
     Active Substance: ALLOPURINOL
     Dates: start: 20201217
  20. ALLOPURINOL [Concomitant]
     Active Substance: ALLOPURINOL
     Dates: start: 20210320, end: 20210322
  21. ALLOPURINOL [Concomitant]
     Active Substance: ALLOPURINOL
     Dates: start: 20210319, end: 20210323
  22. SODIUM BICARBONATE [Concomitant]
     Active Substance: SODIUM BICARBONATE
     Dates: start: 20201218
  23. SODIUM BICARBONATE [Concomitant]
     Active Substance: SODIUM BICARBONATE
     Dates: start: 20201225, end: 20210104
  24. SODIUM BICARBONATE [Concomitant]
     Active Substance: SODIUM BICARBONATE
     Dates: start: 20210320, end: 20210322
  25. SODIUM BICARBONATE [Concomitant]
     Active Substance: SODIUM BICARBONATE
     Dates: start: 20210319, end: 20210323
  26. TROPISETRON HYDROCHLORIDE [Concomitant]
     Active Substance: TROPISETRON HYDROCHLORIDE
     Dates: start: 20201220, end: 20201223
  27. TROPISETRON HYDROCHLORIDE [Concomitant]
     Active Substance: TROPISETRON HYDROCHLORIDE
     Dates: start: 20201225, end: 20201228
  28. TROPISETRON HYDROCHLORIDE [Concomitant]
     Active Substance: TROPISETRON HYDROCHLORIDE
     Dates: start: 20210220, end: 20210223
  29. VITAMIN B6 [Concomitant]
     Active Substance: PYRIDOXINE HYDROCHLORIDE
     Dosage: 10 MG
     Dates: start: 20201220, end: 20201223
  30. VITAMIN B6 [Concomitant]
     Active Substance: PYRIDOXINE HYDROCHLORIDE
     Dates: start: 20210301, end: 20210302
  31. RECOMBINANT HUMAN GRANULOCYTE STIMULATING FACTOR (UNK INGREDIENTS) [Concomitant]
     Dates: start: 20201223, end: 20201224
  32. RECOMBINANT HUMAN GRANULOCYTE STIMULATING FACTOR (UNK INGREDIENTS) [Concomitant]
     Dates: start: 20210223, end: 20210224
  33. RECOMBINANT HUMAN GRANULOCYTE STIMULATING FACTOR (UNK INGREDIENTS) [Concomitant]
     Dates: start: 20210305, end: 20210307
  34. CEFUROXIME SODIUM [Concomitant]
     Active Substance: CEFUROXIME SODIUM
  35. TRANEXAMIC ACID [Concomitant]
     Active Substance: TRANEXAMIC ACID
     Dates: start: 20210415, end: 20210417
  36. FAMOTIDINE [Concomitant]
     Active Substance: FAMOTIDINE
     Dates: start: 20201225, end: 20201228
  37. LINEZOLID [Concomitant]
     Active Substance: LINEZOLID
     Dates: start: 20210301, end: 20210302
  38. OXYCODONE HYDROCHLORIDE [Concomitant]
     Active Substance: OXYCODONE HYDROCHLORIDE
     Dates: start: 20210220, end: 20210223
  39. LEVOFLOXACIN;SODIUM CHLORIDE [Concomitant]
     Dates: start: 20210301, end: 20210302
  40. CIMETIDINE [Concomitant]
     Active Substance: CIMETIDINE
     Dates: start: 20210304, end: 20210307
  41. CIMETIDINE [Concomitant]
     Active Substance: CIMETIDINE
     Dates: start: 20210308, end: 20210309
  42. CIMETIDINE [Concomitant]
     Active Substance: CIMETIDINE
     Dates: start: 20210310, end: 20210322
  43. CIMETIDINE [Concomitant]
     Active Substance: CIMETIDINE
     Dates: start: 20210323, end: 20210323
  44. POTASSIUM CHLORIDE [Concomitant]
     Active Substance: POTASSIUM CHLORIDE
     Dates: start: 20210304, end: 20210305
  45. POTASSIUM CHLORIDE [Concomitant]
     Active Substance: POTASSIUM CHLORIDE
     Dates: start: 20210306, end: 20210323
  46. POTASSIUM CHLORIDE [Concomitant]
     Active Substance: POTASSIUM CHLORIDE
     Dates: start: 20210403, end: 20210409
  47. VITAMIN C [Concomitant]
     Active Substance: ASCORBIC ACID
     Dates: start: 20210304, end: 20210304
  48. OPRELVEKIN [Concomitant]
     Active Substance: OPRELVEKIN
     Dates: start: 20210304, end: 20210304
  49. FAT EMULSION, AMINO ACIDS (17) AND GLUCOSE (11%) [Concomitant]
     Dates: start: 20210305, end: 20210305
  50. SODIUM CHLORIDE [Concomitant]
     Active Substance: SODIUM CHLORIDE
     Dates: start: 20210301, end: 20210302
  51. SODIUM CHLORIDE [Concomitant]
     Active Substance: SODIUM CHLORIDE
     Dates: start: 20210305, end: 20210305
  52. SODIUM CHLORIDE [Concomitant]
     Active Substance: SODIUM CHLORIDE
     Dates: start: 20210308, end: 20210308
  53. SODIUM CHLORIDE [Concomitant]
     Active Substance: SODIUM CHLORIDE
     Dates: start: 20210415, end: 20210417
  54. SODIUM CHLORIDE [Concomitant]
     Active Substance: SODIUM CHLORIDE
     Dates: start: 20210304, end: 20210409
  55. SODIUM CHLORIDE [Concomitant]
     Active Substance: SODIUM CHLORIDE
     Dates: start: 20210303
  56. INSULIN NOS [Concomitant]
     Active Substance: INSULIN NOS
  57. DEXTROSE [Concomitant]
     Active Substance: DEXTROSE
     Dates: start: 20210318, end: 20210318
  58. LIPOSYN (R) INTRAVENOUS FAT EMULSION [Concomitant]
     Active Substance: LIPOSYN (R) INTRAVENOUS FAT EMULSION
  59. SODIUM CHLORIDE [Concomitant]
     Active Substance: SODIUM CHLORIDE
  60. SODIUM GLYCEROPHOSPHATE [Concomitant]
     Active Substance: SODIUM GLYCEROPHOSPHATE
     Dates: start: 20210306, end: 20210323
  61. MAGNESIUM SULFATE [Concomitant]
     Active Substance: MAGNESIUM SULFATE
     Dates: start: 20210306, end: 20210323
  62. CALCIUM GLUCONATE [Concomitant]
     Active Substance: CALCIUM GLUCONATE
     Dates: start: 20210306, end: 20210323
  63. CALCIUM GLUCONATE [Concomitant]
     Active Substance: CALCIUM GLUCONATE
     Dates: start: 20210319, end: 20210319
  64. ALANYL GLUTAMINE [Concomitant]
     Active Substance: ALANYL GLUTAMINE
     Dates: start: 20210311, end: 20210323
  65. COD LIVER OIL [Concomitant]
     Active Substance: COD LIVER OIL
     Dosage: 3 OTHER
     Dates: start: 20210307, end: 20210323
  66. PROPOFOL [Concomitant]
     Active Substance: PROPOFOL
     Dates: start: 20210308, end: 20210308
  67. MIDAZOLAM [Concomitant]
     Active Substance: MIDAZOLAM
     Dates: start: 20210308, end: 20210308
  68. ATROPINE SULFATE [Concomitant]
     Active Substance: ATROPINE SULFATE
     Dates: start: 20210308, end: 20210308
  69. SUFENTANIL CITRATE [Concomitant]
     Active Substance: SUFENTANIL CITRATE
     Dates: start: 20210308, end: 20210308
  70. DEXTROSE\SODIUM CHLORIDE [Concomitant]
     Active Substance: DEXTROSE\SODIUM CHLORIDE
     Dates: start: 20210310, end: 20210310
  71. RACEANISODAMINE HYDROCHLORIDE [Concomitant]
     Dates: start: 20210311, end: 20210311
  72. NYSTATIN [Concomitant]
     Active Substance: NYSTATIN
     Dosage: 20 TABLETS
     Dates: start: 20210318, end: 20210318
  73. NYSTATIN [Concomitant]
     Active Substance: NYSTATIN
     Dosage: 40 TABLTS
     Dates: start: 20210322, end: 20210322
  74. FLUCONAZOLE [Concomitant]
     Active Substance: FLUCONAZOLE
     Dosage: ON 19/MAR/2021, 500 ML ONCE PER DAY
     Dates: start: 20210319, end: 20210323
  75. FLUCONAZOLE [Concomitant]
     Active Substance: FLUCONAZOLE
     Dates: start: 20210407
  76. FLUCONAZOLE [Concomitant]
     Active Substance: FLUCONAZOLE
     Dates: start: 20210408
  77. GANCICLOVIR [Concomitant]
     Active Substance: GANCICLOVIR
     Dates: start: 20210317, end: 20210322
  78. AMBROXOL HYDROCHLORIDE [Concomitant]
     Active Substance: AMBROXOL HYDROCHLORIDE
  79. SODIUM POTASSIUM MAGNESIUM CALCIUM AND GLUCOSE [Concomitant]
     Dates: start: 20210303, end: 20210303
  80. VITAMINS [Concomitant]
     Active Substance: VITAMINS
     Dates: start: 20210306, end: 20210323
  81. METHYLPREDNISOLONE [Concomitant]
     Active Substance: METHYLPREDNISOLONE
     Dates: start: 20210618, end: 20210620
  82. METHYLPREDNISOLONE [Concomitant]
     Active Substance: METHYLPREDNISOLONE
     Dates: start: 20210621, end: 20210623
  83. METHYLPREDNISOLONE [Concomitant]
     Active Substance: METHYLPREDNISOLONE
     Dates: start: 20210624, end: 20210626
  84. METHYLPREDNISOLONE [Concomitant]
     Active Substance: METHYLPREDNISOLONE
     Dates: start: 20210627, end: 20210629
  85. METHYLPREDNISOLONE [Concomitant]
     Active Substance: METHYLPREDNISOLONE
     Dates: start: 20210630, end: 20210702
  86. METHYLPREDNISOLONE [Concomitant]
     Active Substance: METHYLPREDNISOLONE
     Dosage: ONCE PER DAY
     Dates: start: 20210603, end: 20210605
  87. METHYLPREDNISOLONE [Concomitant]
     Active Substance: METHYLPREDNISOLONE
     Dosage: ONCE PER DAY
     Dates: start: 20210706, end: 20210708
  88. METHYLPREDNISOLONE [Concomitant]
     Active Substance: METHYLPREDNISOLONE
     Dates: start: 20210709, end: 20210711
  89. METHYLPREDNISOLONE [Concomitant]
     Active Substance: METHYLPREDNISOLONE
     Dates: start: 20210712, end: 20210714
  90. METHYLPREDNISOLONE [Concomitant]
     Active Substance: METHYLPREDNISOLONE
     Dates: start: 20210715, end: 20210717
  91. METHYLPREDNISOLONE [Concomitant]
     Active Substance: METHYLPREDNISOLONE
     Dates: start: 20210718, end: 20210720
  92. METHYLPREDNISOLONE [Concomitant]
     Active Substance: METHYLPREDNISOLONE
     Dates: start: 20210725, end: 20210801
  93. METHYLPREDNISOLONE [Concomitant]
     Active Substance: METHYLPREDNISOLONE
     Dates: start: 20210802, end: 20210807
  94. METHYLPREDNISOLONE [Concomitant]
     Active Substance: METHYLPREDNISOLONE
     Dates: start: 20210808, end: 20210814
  95. METHYLPREDNISOLONE [Concomitant]
     Active Substance: METHYLPREDNISOLONE
     Dates: start: 20210815, end: 20210825
  96. METHYLPREDNISOLONE [Concomitant]
     Active Substance: METHYLPREDNISOLONE
     Dates: start: 20210826, end: 20210902
  97. METHYLPREDNISOLONE [Concomitant]
     Active Substance: METHYLPREDNISOLONE
     Dates: start: 20210409, end: 20210414
  98. METHYLPREDNISOLONE [Concomitant]
     Active Substance: METHYLPREDNISOLONE
     Dates: start: 20210415, end: 20210415
  99. METHYLPREDNISOLONE [Concomitant]
     Active Substance: METHYLPREDNISOLONE
     Dates: start: 20210416, end: 20210421
  100. METHYLPREDNISOLONE [Concomitant]
     Active Substance: METHYLPREDNISOLONE
     Dates: start: 20210422, end: 20210424
  101. METHYLPREDNISOLONE [Concomitant]
     Active Substance: METHYLPREDNISOLONE
     Dates: start: 20210425, end: 20210427
  102. METHYLPREDNISOLONE [Concomitant]
     Active Substance: METHYLPREDNISOLONE
     Dates: start: 20210428, end: 20210430
  103. METHYLPREDNISOLONE [Concomitant]
     Active Substance: METHYLPREDNISOLONE
     Dates: start: 20210703, end: 20210705
  104. METHYLPREDNISOLONE [Concomitant]
     Active Substance: METHYLPREDNISOLONE
     Dates: start: 20210706, end: 20210708
  105. METHYLPREDNISOLONE [Concomitant]
     Active Substance: METHYLPREDNISOLONE
     Dates: start: 20210709, end: 20210711
  106. METHYLPREDNISOLONE [Concomitant]
     Active Substance: METHYLPREDNISOLONE
     Dates: start: 20210712, end: 20210714
  107. METHYLPREDNISOLONE [Concomitant]
     Active Substance: METHYLPREDNISOLONE
     Dates: start: 20210715, end: 20210717
  108. METHYLPREDNISOLONE [Concomitant]
     Active Substance: METHYLPREDNISOLONE
     Dates: start: 20210718, end: 20210724
  109. METHYLPREDNISOLONE [Concomitant]
     Active Substance: METHYLPREDNISOLONE
     Dates: start: 20210725, end: 20210801
  110. METHYLPREDNISOLONE [Concomitant]
     Active Substance: METHYLPREDNISOLONE
     Dates: start: 20210802, end: 20210807
  111. METHYLPREDNISOLONE [Concomitant]
     Active Substance: METHYLPREDNISOLONE
     Dates: start: 20210808, end: 20210814
  112. METHYLPREDNISOLONE [Concomitant]
     Active Substance: METHYLPREDNISOLONE
     Dates: start: 20210815, end: 20210825
  113. METHYLPREDNISOLONE [Concomitant]
     Active Substance: METHYLPREDNISOLONE
     Dates: start: 20210826, end: 20210902
  114. METHYLPREDNISOLONE [Concomitant]
     Active Substance: METHYLPREDNISOLONE
     Dates: start: 20210903, end: 20210910
  115. METHYLPREDNISOLONE [Concomitant]
     Active Substance: METHYLPREDNISOLONE
     Dates: start: 20211011, end: 20211018
  116. METHYLPREDNISOLONE [Concomitant]
     Active Substance: METHYLPREDNISOLONE
     Dates: start: 20211019
  117. PIPERACILLIN AND TAZOBACTAM [Concomitant]
     Active Substance: PIPERACILLIN SODIUM\TAZOBACTAM SODIUM
     Dates: start: 20210520, end: 20210530
  118. PIPERACILLIN AND TAZOBACTAM [Concomitant]
     Active Substance: PIPERACILLIN SODIUM\TAZOBACTAM SODIUM
     Dates: start: 20210315, end: 20210315
  119. ACETYLCYSTEINE [Concomitant]
     Active Substance: ACETYLCYSTEINE
     Dates: start: 20210521, end: 20210601
  120. ACETYLCYSTEINE [Concomitant]
     Active Substance: ACETYLCYSTEINE
     Route: 055
     Dates: start: 20210325, end: 20210409
  121. COMPOUND AMINOPHENAZONE AND BARBITAL [Concomitant]
     Dates: start: 20210521, end: 20210521
  122. MOSAPRIDE CITRATE [Concomitant]
     Active Substance: MOSAPRIDE CITRATE
     Dates: start: 20210615, end: 20210615
  123. METHYLPREDNISOLONE SODIUM SUCCINATE [Concomitant]
     Active Substance: METHYLPREDNISOLONE SODIUM SUCCINATE
     Dates: start: 20210613, end: 20210617
  124. METHYLPREDNISOLONE SODIUM SUCCINATE [Concomitant]
     Active Substance: METHYLPREDNISOLONE SODIUM SUCCINATE
     Dates: start: 20210322, end: 20210323
  125. METHYLPREDNISOLONE SODIUM SUCCINATE [Concomitant]
     Active Substance: METHYLPREDNISOLONE SODIUM SUCCINATE
     Dates: start: 20210408, end: 20210408
  126. METHYLPREDNISOLONE SODIUM SUCCINATE [Concomitant]
     Active Substance: METHYLPREDNISOLONE SODIUM SUCCINATE
  127. MONTMORILLONITE [Concomitant]
     Active Substance: MONTMORILLONITE
     Dosage: 1 OTHER
     Dates: start: 20210609, end: 20210609
  128. MONTMORILLONITE [Concomitant]
     Active Substance: MONTMORILLONITE
     Dates: start: 20210611, end: 20210613
  129. VITAMIN B6 [Concomitant]
     Active Substance: PYRIDOXINE HYDROCHLORIDE
     Dates: start: 20210220, end: 20210223
  130. MOXIFLOXACIN HYDROCHLORIDE [Concomitant]
     Active Substance: MOXIFLOXACIN HYDROCHLORIDE
     Dates: start: 20210409, end: 20210427
  131. GLYCYRRHIZIN [Concomitant]
     Active Substance: GLYCYRRHIZIN
     Dates: start: 20210409, end: 20210427
  132. FLUCONAZOLE [Concomitant]
     Active Substance: FLUCONAZOLE
     Dates: start: 20210409, end: 20210427
  133. CEFOPERAZONE SODIUM\SULBACTAM SODIUM [Concomitant]
     Active Substance: CEFOPERAZONE SODIUM\SULBACTAM SODIUM
     Dates: start: 20210325, end: 20210409
  134. ALBUMIN HUMAN [Concomitant]
     Active Substance: ALBUMIN HUMAN
     Dates: start: 20210403, end: 20210406
  135. CALCIUM CARBONATE;VITAMIN D3 [Concomitant]
     Dates: start: 20210403, end: 20210409
  136. ALPRAZOLAM [Concomitant]
     Active Substance: ALPRAZOLAM
     Dates: start: 20210331
  137. AMINO ACIDS, SOURCE UNSPECIFIED [Concomitant]
     Active Substance: AMINO ACIDS, SOURCE UNSPECIFIED
     Dates: start: 20210305, end: 20210306

REACTIONS (3)
  - Immune-mediated enterocolitis [Not Recovered/Not Resolved]
  - Haemoptysis [Recovered/Resolved]
  - Pneumonia [Recovered/Resolved]

NARRATIVE: CASE EVENT DATE: 20201228
